FAERS Safety Report 20988189 (Version 1)
Quarter: 2022Q2

REPORT INFORMATION
  Report Type: Spontaneous
  Country: US (occurrence: None)
  Receive Date: 20220620
  Receipt Date: 20220620
  Transmission Date: 20220721
  Serious: Yes (Death)
  Sender: FDA-Public Use
  Company Number: None

PATIENT
  Age: 71 Year
  Sex: Male

DRUGS (3)
  1. CINACALCET HYDROCHLORIDE [Suspect]
     Active Substance: CINACALCET HYDROCHLORIDE
     Indication: Hypercalcaemia
     Dosage: TAKE 1 TABLET BY MOUTH ONCE DAILY WITH DINNER.
     Route: 048
     Dates: start: 20201112, end: 20220610
  2. CYCLOSPORINE [Concomitant]
     Active Substance: CYCLOSPORINE
  3. PROMACTA [Concomitant]
     Active Substance: ELTROMBOPAG OLAMINE

REACTIONS (1)
  - Death [None]

NARRATIVE: CASE EVENT DATE: 20220610
